FAERS Safety Report 9503696 (Version 1)
Quarter: 2013Q1

REPORT INFORMATION
  Report Type: Spontaneous
  Country: US (occurrence: None)
  Receive Date: 20130107
  Receipt Date: 20130107
  Transmission Date: 20140127
  Serious: No
  Sender: FDA-Public Use
  Company Number: PHEH2012US019765

PATIENT
  Age: 43 Year
  Sex: Male

DRUGS (4)
  1. GILENYA (FINGOLIMOD) CAPSULE , 0.5MG [Suspect]
     Indication: MULTIPLE SCLEROSIS
     Route: 048
  2. QUINAPRIL (QUINAPRIL) [Concomitant]
  3. PANTOPRAZOLE (PANTOPRAZOLE) [Concomitant]
  4. MULTIVITAMINS [Concomitant]

REACTIONS (1)
  - Optic neuropathy [None]
